FAERS Safety Report 6718114-X (Version None)
Quarter: 2010Q2

REPORT INFORMATION
  Report Type: 
  Country: None (occurrence: None)
  Receive Date: 20100510
  Receipt Date: 20100503
  Transmission Date: 20101027
  Serious: Yes (Hospitalization)
  Sender: FDA-Public Use
  Company Number: A0857702A

PATIENT
  Age: 17 Year
  Sex: Male
  Weight: 100 kg

DRUGS (2)
  1. LAMICTAL [Suspect]
     Indication: ANXIETY
     Dosage: 200MG PER DAY
     Route: 048
  2. NO CONCURRENT MEDICATION [Concomitant]

REACTIONS (10)
  - DEHYDRATION [None]
  - DYSPNOEA [None]
  - INFECTION [None]
  - INFLUENZA LIKE ILLNESS [None]
  - LOCAL SWELLING [None]
  - LYMPHADENOPATHY [None]
  - PHARYNGITIS STREPTOCOCCAL [None]
  - PYREXIA [None]
  - SWOLLEN TONGUE [None]
  - VOMITING [None]
